FAERS Safety Report 13570117 (Version 1)
Quarter: 2017Q2

REPORT INFORMATION
  Report Type: Spontaneous
  Country: US (occurrence: US)
  Receive Date: 20170522
  Receipt Date: 20170522
  Transmission Date: 20170830
  Serious: No
  Sender: FDA-Public Use
  Company Number: US-BIOGEN-2017BI00403501

PATIENT
  Sex: Female

DRUGS (1)
  1. TYSABRI [Suspect]
     Active Substance: NATALIZUMAB
     Indication: MULTIPLE SCLEROSIS
     Route: 065
     Dates: start: 20141027

REACTIONS (6)
  - Drug dose omission [Unknown]
  - Musculoskeletal disorder [Unknown]
  - Confusional state [Unknown]
  - Foot fracture [Unknown]
  - Crying [Unknown]
  - General physical health deterioration [Unknown]
